FAERS Safety Report 21258082 (Version 1)
Quarter: 2022Q3

REPORT INFORMATION
  Report Type: Spontaneous
  Country: CN (occurrence: CN)
  Receive Date: 20220826
  Receipt Date: 20220826
  Transmission Date: 20221026
  Serious: Yes (Other)
  Sender: FDA-Public Use
  Company Number: CN-CIPLA LTD.-2022CN05086

PATIENT
  Age: 53 Year
  Sex: Male

DRUGS (13)
  1. LAMIVUDINE [Suspect]
     Active Substance: LAMIVUDINE
     Indication: Acquired immunodeficiency syndrome
     Dosage: UNK
     Route: 065
     Dates: start: 2021
  2. LAMIVUDINE [Suspect]
     Active Substance: LAMIVUDINE
     Dosage: UNK
     Route: 065
  3. ABACAVIR [Suspect]
     Active Substance: ABACAVIR
     Indication: Acquired immunodeficiency syndrome
     Dosage: UNK
     Route: 065
     Dates: start: 2021
  4. ZIDOVUDINE [Suspect]
     Active Substance: ZIDOVUDINE
     Indication: Acquired immunodeficiency syndrome
     Dosage: UNK
     Route: 065
     Dates: start: 2021
  5. STAVUDINE [Suspect]
     Active Substance: STAVUDINE
     Indication: Acquired immunodeficiency syndrome
     Dosage: UNK
     Route: 065
     Dates: start: 2021
  6. DIDANOSINE [Suspect]
     Active Substance: DIDANOSINE
     Indication: Acquired immunodeficiency syndrome
     Dosage: UNK
     Route: 065
     Dates: start: 2021
  7. EMTRICITABINE [Suspect]
     Active Substance: EMTRICITABINE
     Indication: Acquired immunodeficiency syndrome
     Dosage: UNK
     Route: 065
     Dates: start: 2021
  8. TENOFOVIR [Suspect]
     Active Substance: TENOFOVIR
     Indication: Acquired immunodeficiency syndrome
     Dosage: UNK
     Route: 065
     Dates: start: 2021
  9. ISONIAZID [Concomitant]
     Active Substance: ISONIAZID
     Indication: Tuberculosis
     Dosage: UNK
     Route: 065
     Dates: start: 2021
  10. ETHAMBUTOL [Concomitant]
     Active Substance: ETHAMBUTOL HYDROCHLORIDE
     Indication: Tuberculosis
     Dosage: UNK
     Route: 065
     Dates: start: 2021
  11. PYRAZINAMIDE [Concomitant]
     Active Substance: PYRAZINAMIDE
     Indication: Tuberculosis
     Dosage: UNK
     Route: 065
     Dates: start: 2021
  12. LEVOFLOXACIN [Concomitant]
     Active Substance: LEVOFLOXACIN
     Indication: Tuberculosis
     Dosage: UNK
     Route: 065
     Dates: start: 2021
  13. ITRACONAZOLE [Concomitant]
     Active Substance: ITRACONAZOLE
     Indication: Fungal infection
     Dosage: UNK
     Route: 065
     Dates: start: 2021

REACTIONS (1)
  - Drug resistance [Unknown]

NARRATIVE: CASE EVENT DATE: 20210101
